FAERS Safety Report 23300787 (Version 1)
Quarter: 2023Q4

REPORT INFORMATION
  Report Type: Spontaneous
  Country: US (occurrence: US)
  Receive Date: 20231215
  Receipt Date: 20231215
  Transmission Date: 20240110
  Serious: No
  Sender: FDA-Public Use
  Company Number: US-ALEMBIC PHARMACUETICALS LIMITED-2023SCAL001198

PATIENT

DRUGS (1)
  1. TADALAFIL [Suspect]
     Active Substance: TADALAFIL
     Indication: Product used for unknown indication
     Dosage: 1 TABLET DAILY
     Route: 065

REACTIONS (4)
  - Dehydration [Unknown]
  - Benign prostatic hyperplasia [Unknown]
  - Condition aggravated [Unknown]
  - Muscle spasms [Unknown]
